FAERS Safety Report 5269046-8 (Version None)
Quarter: 2007Q1

REPORT INFORMATION
  Report Type: 
  Country: None (occurrence: None)
  Receive Date: 20070319
  Receipt Date: 20070314
  Transmission Date: 20070707
  Serious: Yes (Death)
  Sender: FDA-Public Use
  Company Number: 2007AP00746

PATIENT
  Age: 29568 Day
  Sex: Male

DRUGS (8)
  1. IRESSA [Suspect]
     Indication: LUNG ADENOCARCINOMA STAGE IV
     Route: 048
     Dates: start: 20061025, end: 20070108
  2. BOIOGITO [Suspect]
     Indication: OEDEMA
     Route: 048
     Dates: start: 20061220, end: 20070108
  3. VOLTAREN [Concomitant]
     Route: 048
     Dates: start: 20061003, end: 20070108
  4. ACINON [Concomitant]
     Route: 048
     Dates: start: 20061003, end: 20070108
  5. HARNAL [Concomitant]
     Route: 048
     Dates: start: 20061017, end: 20070108
  6. PREDONINE [Concomitant]
     Route: 048
     Dates: start: 20061017, end: 20070108
  7. OXYCONTIN [Concomitant]
     Route: 048
     Dates: start: 20061017, end: 20070115
  8. NAUZELIN [Concomitant]
     Route: 048
     Dates: start: 20061122, end: 20070108

REACTIONS (6)
  - LUNG ADENOCARCINOMA STAGE IV [None]
  - LUNG DISORDER [None]
  - LUNG INFILTRATION [None]
  - LUNG INJURY [None]
  - MALIGNANT NEOPLASM PROGRESSION [None]
  - OEDEMA PERIPHERAL [None]
